FAERS Safety Report 8492407-0 (Version None)
Quarter: 2012Q2

REPORT INFORMATION
  Report Type: 
  Country: None (occurrence: None)
  Receive Date: 20120621
  Receipt Date: 20120608
  Transmission Date: 20120825
  Serious: Yes (Other)
  Sender: FDA-Public Use
  Company Number: 2012032488

PATIENT
  Age: 49 Year
  Sex: Male

DRUGS (4)
  1. PRIVIGEN [Suspect]
     Indication: POLYMYOSITIS
     Dosage: SEE IMAGE
     Route: 042
     Dates: start: 20120507, end: 20120511
  2. PRIVIGEN [Suspect]
     Indication: POLYMYOSITIS
     Dosage: SEE IMAGE
     Route: 042
     Dates: start: 20120507, end: 20120507
  3. PRIVIGEN [Suspect]
     Indication: POLYMYOSITIS
     Dosage: SEE IMAGE
     Route: 042
     Dates: start: 20120509, end: 20120509
  4. PRIVIGEN [Suspect]
     Indication: POLYMYOSITIS
     Dosage: SEE IMAGE
     Route: 042
     Dates: start: 20120511, end: 20120511

REACTIONS (3)
  - ANAEMIA [None]
  - OFF LABEL USE [None]
  - HAEMOLYSIS [None]
